FAERS Safety Report 14760824 (Version 1)
Quarter: 2018Q2

REPORT INFORMATION
  Report Type: Report from Study
  Country: US (occurrence: US)
  Receive Date: 20180414
  Receipt Date: 20180414
  Transmission Date: 20180711
  Serious: Yes (Death, Hospitalization)
  Sender: FDA-Public Use
  Company Number: US-JNJFOC-20180407419

PATIENT
  Age: 53 Year
  Sex: Male

DRUGS (2)
  1. TYLENOL ARTHRITIS PAIN [Suspect]
     Active Substance: ACETAMINOPHEN
     Route: 048
  2. TYLENOL ARTHRITIS PAIN [Suspect]
     Active Substance: ACETAMINOPHEN
     Indication: PAIN
     Dosage: 1300MG OF ACETAMINOPHEN 3 TIMES DAILY FOR 5 DAYS FOR PAIN
     Route: 048

REACTIONS (9)
  - Haematemesis [Fatal]
  - Blood creatinine increased [Fatal]
  - Hypotension [Fatal]
  - Blood urea increased [Fatal]
  - Coagulation factor increased [Fatal]
  - Blood bilirubin increased [Fatal]
  - Toxicity to various agents [Fatal]
  - Medication error [Fatal]
  - Aspartate aminotransferase increased [Fatal]
